FAERS Safety Report 24212410 (Version 1)
Quarter: 2024Q3

REPORT INFORMATION
  Report Type: Report from Study
  Country: PE (occurrence: PE)
  Receive Date: 20240815
  Receipt Date: 20240815
  Transmission Date: 20241017
  Serious: Yes (Other)
  Sender: UCB
  Company Number: PE-UCBSA-2024040358

PATIENT
  Age: 54 Year
  Sex: Male

DRUGS (2)
  1. CERTOLIZUMAB PEGOL [Suspect]
     Active Substance: CERTOLIZUMAB PEGOL
     Indication: Rheumatoid arthritis
     Dosage: 400 MILLIGRAM, EV 30 DAYS
     Route: 058
     Dates: start: 20211117
  2. TAMSULOSIN [Concomitant]
     Active Substance: TAMSULOSIN
     Indication: Product used for unknown indication
     Dosage: UNK DAILY

REACTIONS (2)
  - Benign prostatic hyperplasia [Recovered/Resolved]
  - Prostatectomy [Recovering/Resolving]

NARRATIVE: CASE EVENT DATE: 20240730
